FAERS Safety Report 9816685 (Version 1)
Quarter: 2014Q1

REPORT INFORMATION
  Report Type: Spontaneous
  Country: HR (occurrence: HR)
  Receive Date: 20140114
  Receipt Date: 20140114
  Transmission Date: 20141002
  Serious: Yes (Hospitalization)
  Sender: FDA-Public Use
  Company Number: HR-TEVA-455806ISR

PATIENT
  Age: 80 Year
  Sex: Female
  Weight: 70 kg

DRUGS (5)
  1. TEGRETOL [Suspect]
     Indication: TRIGEMINAL NERVE DISORDER
     Dosage: 400 MILLIGRAM DAILY;
     Route: 048
     Dates: start: 20120302, end: 20131103
  2. FEVARIN [Interacting]
     Indication: TRIGEMINAL NERVE DISORDER
     Dosage: 100 MILLIGRAM DAILY;
     Route: 048
     Dates: start: 20120302, end: 20131103
  3. LANITOP [Concomitant]
     Indication: ATRIAL FIBRILLATION
     Dosage: .1 MILLIGRAM DAILY;
     Route: 048
     Dates: start: 20010608
  4. MATRIFEN [Concomitant]
     Indication: NASAL SINUS CANCER
     Route: 062
     Dates: start: 20120731
  5. MARTEFARIN [Concomitant]
     Indication: ATRIAL FIBRILLATION
     Dosage: 3 MILLIGRAM DAILY;
     Route: 048
     Dates: start: 20010807

REACTIONS (3)
  - Interstitial lung disease [Recovered/Resolved]
  - Haemoptysis [Recovered/Resolved]
  - Drug interaction [Recovered/Resolved]
